FAERS Safety Report 12493166 (Version 1)
Quarter: 2016Q2

REPORT INFORMATION
  Report Type: Spontaneous
  Country: US (occurrence: US)
  Receive Date: 20160623
  Receipt Date: 20160623
  Transmission Date: 20160815
  Serious: Yes (Other)
  Sender: FDA-Public Use
  Company Number: US-BAYER-2016-117047

PATIENT
  Age: 58 Year
  Sex: Female
  Weight: 68.2 kg

DRUGS (4)
  1. MIRAFIBER SUGAR FREE ORANGE POWDER [Suspect]
     Active Substance: METHYLCELLULOSES
     Indication: ROUTINE HEALTH MAINTENANCE
     Dosage: 1 TABLESPOON, ONCE
     Route: 048
     Dates: start: 20160612, end: 20160612
  2. LEVOTHYROXINE. [Concomitant]
     Active Substance: LEVOTHYROXINE
     Dosage: UNK
  3. REMERON [Concomitant]
     Active Substance: MIRTAZAPINE
  4. MIRALAX [Suspect]
     Active Substance: POLYETHYLENE GLYCOL 3350
     Indication: COLONOSCOPY
     Dosage: UNK
     Route: 048
     Dates: start: 2015, end: 2015

REACTIONS (4)
  - Dysgeusia [Recovered/Resolved]
  - Product use issue [None]
  - Choking [Recovered/Resolved]
  - Wrong technique in product usage process [None]

NARRATIVE: CASE EVENT DATE: 2015
